FAERS Safety Report 18525454 (Version 1)
Quarter: 2020Q4

REPORT INFORMATION
  Report Type: Spontaneous
  Country: US (occurrence: US)
  Receive Date: 20201120
  Receipt Date: 20201120
  Transmission Date: 20210114
  Serious: No
  Sender: FDA-Public Use
  Company Number: US-TEVA-2020-US-1846854

PATIENT
  Sex: Female

DRUGS (1)
  1. AJOVY [Suspect]
     Active Substance: FREMANEZUMAB-VFRM
     Dosage: MONTHLY
     Route: 065

REACTIONS (3)
  - Accidental exposure to product [Unknown]
  - Incorrect route of product administration [Unknown]
  - Device malfunction [Unknown]
